FAERS Safety Report 15046104 (Version 1)
Quarter: 2018Q2

REPORT INFORMATION
  Report Type: Spontaneous
  Country: FR (occurrence: FR)
  Receive Date: 20180621
  Receipt Date: 20180621
  Transmission Date: 20180711
  Serious: Yes (Hospitalization)
  Sender: FDA-Public Use
  Company Number: FR-TEVA-2018-FR-911122

PATIENT
  Age: 73 Year
  Sex: Male

DRUGS (12)
  1. DOCETAXEL ACCORD 80 MG/4 ML, SOLUTION ? DILUER POUR PERFUSION [Suspect]
     Active Substance: DOCETAXEL
     Indication: HEPATIC CANCER
     Route: 041
     Dates: start: 20180418, end: 20180418
  2. ZOPHREN 8 MG, LYOPHILISAT ORAL [Concomitant]
     Indication: PROPHYLAXIS OF NAUSEA AND VOMITING
     Dosage: 8 MILLIGRAM DAILY;
     Route: 048
  3. OXYCONTIN LP 10 MG, COMPRIM? PELLICUL? ? LIB?RATION PROLONG?E [Concomitant]
     Indication: PAIN
     Dosage: 20 MILLIGRAM DAILY;
     Route: 048
  4. EMEND [Concomitant]
     Active Substance: APREPITANT
     Indication: PROPHYLAXIS OF NAUSEA AND VOMITING
     Route: 048
  5. FLUOROURACILE [Suspect]
     Active Substance: FLUOROURACIL
     Indication: HEPATIC CANCER
     Dosage: 950 MG/96 H
     Route: 041
     Dates: start: 20180418, end: 20180418
  6. SOLUPRED [Concomitant]
     Indication: PROPHYLAXIS OF NAUSEA AND VOMITING
     Route: 048
     Dates: start: 20180404
  7. OXYCONTIN L.P. 5 MG, COMPRIM? P?LLICUL? ? LIB?RATION PROLONG?E [Concomitant]
     Indication: PAIN
     Dosage: 10 MILLIGRAM DAILY;
     Route: 048
  8. ABASAGLAR [Concomitant]
     Active Substance: INSULIN GLARGINE
     Indication: TYPE 2 DIABETES MELLITUS
     Dosage: 38 IU (INTERNATIONAL UNIT) DAILY;
     Route: 058
  9. LARGACTIL [Concomitant]
     Active Substance: CHLORPROMAZINE
     Indication: PROPHYLAXIS OF NAUSEA AND VOMITING
     Route: 048
  10. KARDEGIC [Concomitant]
     Active Substance: ASPIRIN DL-LYSINE
     Indication: VASCULAR DEVICE USER
     Dosage: 75 MILLIGRAM DAILY;
     Route: 048
  11. CISPLATINE ACCORD 1 MG/ML, SOLUTION ? DILUER POUR PERFUSION [Suspect]
     Active Substance: CISPLATIN
     Indication: HEPATIC CANCER
     Route: 041
     Dates: start: 20180418, end: 20180418
  12. DOLIPRANE [Concomitant]
     Active Substance: ACETAMINOPHEN
     Indication: PAIN
     Dosage: 3 GRAM DAILY;
     Route: 048

REACTIONS (3)
  - Acute kidney injury [Recovering/Resolving]
  - Febrile bone marrow aplasia [Recovered/Resolved]
  - Enteritis [Recovered/Resolved]

NARRATIVE: CASE EVENT DATE: 20180423
